FAERS Safety Report 18364555 (Version 1)
Quarter: 2020Q4

REPORT INFORMATION
  Report Type: Spontaneous
  Country: US (occurrence: US)
  Receive Date: 20201008
  Receipt Date: 20201008
  Transmission Date: 20210114
  Serious: Yes (Death)
  Sender: FDA-Public Use
  Company Number: None

PATIENT

DRUGS (1)
  1. APIXABAN [Suspect]
     Active Substance: APIXABAN

REACTIONS (7)
  - Brain oedema [None]
  - Respiratory failure [None]
  - Atrial fibrillation [None]
  - Hydrocephalus [None]
  - Fall [None]
  - Basal ganglia haemorrhage [None]
  - Stupor [None]

NARRATIVE: CASE EVENT DATE: 20190706
